FAERS Safety Report 9081776 (Version 1)
Quarter: 2013Q1

REPORT INFORMATION
  Report Type: Report from Study
  Country: US (occurrence: US)
  Receive Date: 20130130
  Receipt Date: 20130130
  Transmission Date: 20140127
  Serious: No
  Sender: FDA-Public Use
  Company Number: US-ABBOTT-12P-163-0978943-00

PATIENT
  Age: 37 Year
  Sex: Female

DRUGS (14)
  1. HUMIRA [Suspect]
     Indication: CROHN^S DISEASE
     Dosage: LOADING DOSE
     Dates: start: 20120828
  2. IMURAN [Concomitant]
     Indication: PRODUCT USED FOR UNKNOWN INDICATION
  3. ZYRTEC DUO [Concomitant]
     Indication: PRODUCT USED FOR UNKNOWN INDICATION
  4. OPANA ER [Concomitant]
     Indication: PRODUCT USED FOR UNKNOWN INDICATION
  5. OXYMORPHONE [Concomitant]
     Indication: BREAKTHROUGH PAIN
  6. LOMOTIL [Concomitant]
     Indication: DIARRHOEA
  7. VITAMIN C [Concomitant]
     Indication: PRODUCT USED FOR UNKNOWN INDICATION
  8. WELLBUTRIN XL [Concomitant]
     Indication: PRODUCT USED FOR UNKNOWN INDICATION
  9. ENJUVIA [Concomitant]
     Indication: PRODUCT USED FOR UNKNOWN INDICATION
     Dosage: DAILY
  10. EFFEXOR XR [Concomitant]
     Indication: PRODUCT USED FOR UNKNOWN INDICATION
  11. CLONAZEPAM [Concomitant]
     Indication: PRODUCT USED FOR UNKNOWN INDICATION
     Dosage: AS REQUIRED
  12. VALTREX [Concomitant]
     Indication: PRODUCT USED FOR UNKNOWN INDICATION
  13. TOPAMAX [Concomitant]
     Indication: PRODUCT USED FOR UNKNOWN INDICATION
  14. IMITREX [Concomitant]
     Indication: MIGRAINE

REACTIONS (2)
  - Night sweats [Not Recovered/Not Resolved]
  - Anxiety [Unknown]
